FAERS Safety Report 25623033 (Version 1)
Quarter: 2025Q3

REPORT INFORMATION
  Report Type: Spontaneous
  Country: US (occurrence: US)
  Receive Date: 20250730
  Receipt Date: 20250730
  Transmission Date: 20251020
  Serious: No
  Sender: GALPHARM INTERNATIONAL
  Company Number: US-PERRIGO-25US004606

PATIENT
  Age: 15 Year
  Sex: Male
  Weight: 70.748 kg

DRUGS (6)
  1. LORATADINE [Suspect]
     Active Substance: LORATADINE
     Indication: Drainage
     Route: 048
     Dates: start: 20250408, end: 20250408
  2. LORATADINE [Suspect]
     Active Substance: LORATADINE
     Indication: Eye pruritus
  3. LORATADINE [Suspect]
     Active Substance: LORATADINE
     Indication: Dyspnoea
  4. LORATADINE [Suspect]
     Active Substance: LORATADINE
     Indication: Nasal congestion
  5. LORATADINE [Suspect]
     Active Substance: LORATADINE
     Indication: Hypersensitivity
  6. LORATADINE [Suspect]
     Active Substance: LORATADINE
     Indication: Accidental overdose

REACTIONS (3)
  - Chest pain [Recovered/Resolved]
  - Accidental overdose [Recovered/Resolved]
  - Product use in unapproved indication [Recovered/Resolved]

NARRATIVE: CASE EVENT DATE: 20250408
